FAERS Safety Report 4401246-9 (Version None)
Quarter: 2004Q3

REPORT INFORMATION
  Report Type: 
  Country: None (occurrence: None)
  Receive Date: 20040907
  Receipt Date: 20040121
  Transmission Date: 20050211
  Serious: No
  Sender: FDA-Public Use
  Company Number: US-BRISTOL-MYERS SQUIBB COMPANY-12484226

PATIENT
  Age: 55 Year
  Sex: Female
  Weight: 97 kg

DRUGS (6)
  1. COUMADIN [Suspect]
     Indication: THROMBOSIS PROPHYLAXIS
     Dosage: 2.5MG EVERY OTHER DAY ALTERNATING WITH 1.25MG; THEN TO 2.5MG ONCE DAILY.
     Route: 048
  2. CELEBREX [Concomitant]
  3. PROVENTIL [Concomitant]
     Route: 055
  4. FLOVENT [Concomitant]
     Route: 055
  5. CALCIUM [Concomitant]
  6. ACTONEL [Concomitant]

REACTIONS (2)
  - INTERNATIONAL NORMALISED RATIO ABNORMAL [None]
  - TOOTH EROSION [None]
